FAERS Safety Report 9213213 (Version 2)
Quarter: 2013Q2

REPORT INFORMATION
  Report Type: Report from Study
  Country: JP (occurrence: JP)
  Receive Date: 20130405
  Receipt Date: 20130530
  Transmission Date: 20140414
  Serious: Yes (Other)
  Sender: FDA-Public Use
  Company Number: JP-SANOFI-AVENTIS-2013SA035303

PATIENT
  Age: 80 Year
  Sex: Male
  Weight: 42 kg

DRUGS (6)
  1. LANTUS INJ SOLOSTAR [Suspect]
     Indication: TYPE 2 DIABETES MELLITUS
     Dosage: DOSE:5 UNIT(S)
     Route: 058
     Dates: start: 20121010, end: 20121023
  2. LANTUS INJ SOLOSTAR [Suspect]
     Indication: TYPE 2 DIABETES MELLITUS
     Dosage: DOSE:2 UNIT(S)
     Route: 058
     Dates: start: 20121024, end: 20121220
  3. SOLOSTAR [Suspect]
     Indication: DEVICE THERAPY
     Dates: start: 20121010, end: 20121023
  4. SOLOSTAR [Suspect]
     Indication: DEVICE THERAPY
     Dates: start: 20121024, end: 20121220
  5. SEIBULE [Concomitant]
     Indication: TYPE 2 DIABETES MELLITUS
     Route: 048
     Dates: start: 20121010
  6. JANUVIA [Concomitant]
     Indication: TYPE 2 DIABETES MELLITUS
     Route: 048
     Dates: start: 20121024, end: 20130115

REACTIONS (1)
  - Dementia [Unknown]
